FAERS Safety Report 15928527 (Version 2)
Quarter: 2019Q1

REPORT INFORMATION
  Report Type: Report from Study
  Country: None (occurrence: IT)
  Receive Date: 20190206
  Receipt Date: 20190228
  Transmission Date: 20190417
  Serious: Yes (Hospitalization, Other)
  Sender: FDA-Public Use
  Company Number: IT-ABBVIE-19S-083-2653443-00

PATIENT
  Age: 48 Year
  Sex: Female

DRUGS (2)
  1. LEXOTAN [Suspect]
     Active Substance: BROMAZEPAM
     Indication: PRODUCT USED FOR UNKNOWN INDICATION
     Dosage: 1 DOSAGE FORM, TOTAL
     Route: 048
     Dates: start: 20180614, end: 20180614
  2. CLARITHROMYCIN. [Suspect]
     Active Substance: CLARITHROMYCIN
     Indication: PRODUCT USED FOR UNKNOWN INDICATION
     Dosage: 2.5 GRAM, TOTAL
     Route: 048
     Dates: start: 20180614, end: 20180614

REACTIONS (5)
  - Drug abuse [Unknown]
  - Intentional self-injury [Recovering/Resolving]
  - Dry mouth [Recovering/Resolving]
  - Sopor [Recovering/Resolving]
  - Palpitations [Recovering/Resolving]

NARRATIVE: CASE EVENT DATE: 20180614
